FAERS Safety Report 14558202 (Version 1)
Quarter: 2018Q1

REPORT INFORMATION
  Report Type: Spontaneous
  Country: US (occurrence: US)
  Receive Date: 20180221
  Receipt Date: 20180221
  Transmission Date: 20180509
  Serious: No
  Sender: FDA-Public Use
  Company Number: US-PERRIGO-17US003246

PATIENT
  Age: 77 Year
  Sex: Male
  Weight: 113.38 kg

DRUGS (5)
  1. LOPERAMIDE HYDROCHLORIDE. [Suspect]
     Active Substance: LOPERAMIDE HYDROCHLORIDE
     Indication: DIARRHOEA
     Dosage: 2 MG, QD
     Route: 048
     Dates: start: 201512
  2. CENTRUM SILVER                     /02363801/ [Concomitant]
     Active Substance: MINERALS\VITAMINS
     Indication: SUPPLEMENTATION THERAPY
     Dosage: 1 TABLET QD
     Route: 048
  3. FISH OIL [Concomitant]
     Active Substance: FISH OIL
     Indication: SUPPLEMENTATION THERAPY
     Dosage: 1 CAPSULE QD
     Route: 048
  4. FLAXSEED [Concomitant]
     Active Substance: FLAX SEED
     Indication: SUPPLEMENTATION THERAPY
     Dosage: 1 CAPSULE QD
     Route: 048
  5. ANTIHYPERTENSIVES [Concomitant]
     Active Substance: UNSPECIFIED INGREDIENT
     Indication: HYPERTENSION
     Dosage: 1 TABLET QD
     Route: 048

REACTIONS (3)
  - Incorrect drug administration duration [Not Recovered/Not Resolved]
  - Intentional product use issue [Not Recovered/Not Resolved]
  - Drug effect delayed [Unknown]

NARRATIVE: CASE EVENT DATE: 201512
